FAERS Safety Report 12573354 (Version 3)
Quarter: 2019Q1

REPORT INFORMATION
  Report Type: Spontaneous
  Country: CA (occurrence: CA)
  Receive Date: 20160720
  Receipt Date: 20190214
  Transmission Date: 20190417
  Serious: Yes (Hospitalization)
  Sender: FDA-Public Use
  Company Number: CA-JNJFOC-20160710646

PATIENT
  Age: 45 Year
  Sex: Female
  Weight: 60 kg

DRUGS (3)
  1. ACETAMINOPHEN. [Suspect]
     Active Substance: ACETAMINOPHEN
     Indication: PRODUCT USED FOR UNKNOWN INDICATION
     Dosage: FOR 2 DAYS PLUS CHRONIC
     Route: 065
  2. ENOXAPARIN [Concomitant]
     Active Substance: ENOXAPARIN
     Indication: PRODUCT USED FOR UNKNOWN INDICATION
     Route: 065
  3. WARFARIN [Concomitant]
     Active Substance: WARFARIN
     Indication: PRODUCT USED FOR UNKNOWN INDICATION
     Route: 065

REACTIONS (11)
  - Aspartate aminotransferase increased [Unknown]
  - Vomiting [Unknown]
  - Hepatotoxicity [Unknown]
  - Renal failure [Unknown]
  - Overdose [Unknown]
  - Hypokalaemia [Unknown]
  - Suicide attempt [Unknown]
  - Alanine aminotransferase increased [Unknown]
  - Metabolic acidosis [Unknown]
  - Nausea [Unknown]
  - Blood lactate dehydrogenase increased [Unknown]

NARRATIVE: CASE EVENT DATE: 20030501
